FAERS Safety Report 11434283 (Version 1)
Quarter: 2015Q3

REPORT INFORMATION
  Report Type: Spontaneous
  Country: US (occurrence: None)
  Receive Date: 20150828
  Receipt Date: 20150828
  Transmission Date: 20151125
  Serious: Yes (Other)
  Sender: FDA-Public Use
  Company Number: None

PATIENT
  Age: 44 Year
  Sex: Male
  Weight: 111.13 kg

DRUGS (1)
  1. REMICADE [Suspect]
     Active Substance: INFLIXIMAB
     Indication: CROHN^S DISEASE
     Dosage: EVERY 6 WEEKS INTO A VEIN
     Route: 042

REACTIONS (4)
  - Gait disturbance [None]
  - Myalgia [None]
  - Arthralgia [None]
  - Movement disorder [None]

NARRATIVE: CASE EVENT DATE: 20150302
